FAERS Safety Report 6656080-6 (Version None)
Quarter: 2010Q1

REPORT INFORMATION
  Report Type: 
  Country: None (occurrence: None)
  Receive Date: 20100329
  Receipt Date: 20100323
  Transmission Date: 20100710
  Serious: Yes (Other)
  Sender: FDA-Public Use
  Company Number: A0852222A

PATIENT
  Age: 5 Month
  Sex: Female
  Weight: 6.8 kg

DRUGS (1)
  1. AMOXICILLIN AND CLAVULANATE POTASSIUM [Suspect]
     Indication: DRUG USE FOR UNKNOWN INDICATION
     Dosage: 800MG SEE DOSAGE TEXT
     Route: 048

REACTIONS (3)
  - HAEMATOCHEZIA [None]
  - LIVER INJURY [None]
  - OVERDOSE [None]
